FAERS Safety Report 20790662 (Version 1)
Quarter: 2022Q2

REPORT INFORMATION
  Report Type: Spontaneous
  Country: US (occurrence: US)
  Receive Date: 20220505
  Receipt Date: 20220505
  Transmission Date: 20220721
  Serious: No
  Sender: FDA-Public Use
  Company Number: US-PFIZER INC-2021535560

PATIENT
  Age: 77 Year
  Sex: Female
  Weight: 71.67 kg

DRUGS (2)
  1. CYTOMEL [Suspect]
     Active Substance: LIOTHYRONINE SODIUM
     Indication: Hypothyroidism
     Dosage: UNK
  2. CYTOMEL [Suspect]
     Active Substance: LIOTHYRONINE SODIUM
     Dosage: 5 UG, 2X/DAY, MORNING AND AFTERNOON
     Dates: start: 1980

REACTIONS (2)
  - Drug ineffective [Unknown]
  - Off label use [Unknown]
